FAERS Safety Report 4961168-1 (Version None)
Quarter: 2006Q1

REPORT INFORMATION
  Report Type: 
  Country: None (occurrence: None)
  Receive Date: 20060201
  Receipt Date: 20051028
  Transmission Date: 20060701
  Serious: No
  Sender: FDA-Public Use
  Company Number: 2005PV003786

PATIENT
  Age: 75 Year
  Sex: Male
  Weight: 122.4712 kg

DRUGS (6)
  1. BYETTA [Suspect]
     Indication: DIABETES MELLITUS NON-INSULIN-DEPENDENT
     Dosage: 5 MCG;BID;SC
     Route: 058
     Dates: start: 20051026
  2. METFORMIN [Concomitant]
  3. AVANDIA [Concomitant]
  4. BENICAR [Concomitant]
  5. AMARYL [Concomitant]
  6. HYTRIN [Concomitant]

REACTIONS (4)
  - BLOOD GLUCOSE DECREASED [None]
  - DYSPEPSIA [None]
  - STOMACH DISCOMFORT [None]
  - THERAPEUTIC RESPONSE UNEXPECTED [None]
